FAERS Safety Report 9403741 (Version 12)
Quarter: 2015Q3

REPORT INFORMATION
  Report Type: Report from Study
  Country: GB (occurrence: GB)
  Receive Date: 20130717
  Receipt Date: 20150831
  Transmission Date: 20151125
  Serious: Yes (Death, Hospitalization)
  Sender: FDA-Public Use
  Company Number: GB-ROCHE-1241728

PATIENT
  Age: 50 Year
  Sex: Male
  Weight: 83 kg

DRUGS (9)
  1. PARACETAMOL [Concomitant]
     Active Substance: ACETAMINOPHEN
     Indication: PYREXIA
     Route: 065
     Dates: start: 20130627, end: 20130628
  2. ZOPICLONE [Concomitant]
     Active Substance: ZOPICLONE
     Indication: INSOMNIA
     Route: 065
     Dates: start: 20130703, end: 20130704
  3. AMOXICILLIN. [Concomitant]
     Active Substance: AMOXICILLIN
     Route: 065
     Dates: start: 20130627, end: 20130627
  4. PARACETAMOL [Concomitant]
     Active Substance: ACETAMINOPHEN
     Route: 065
     Dates: start: 20130703, end: 20130704
  5. TRASTUZUMAB EMTANSINE [Suspect]
     Active Substance: ADO-TRASTUZUMAB EMTANSINE
     Indication: HER-2 POSITIVE GASTRIC CANCER
     Dosage: DATE OF LAST DOSE PRIOR TO SAE: 19/JUN/2013. LAST DOSE TAKEN: 204MG, DATE OF LAST DOSE PRIOR TO INFE
     Route: 042
     Dates: start: 20130212
  6. OMEPRAZOLE. [Concomitant]
     Active Substance: OMEPRAZOLE
     Indication: DUODENAL ULCER
     Route: 065
     Dates: start: 20130626, end: 20130704
  7. CO-AMOXICLAV [Concomitant]
     Active Substance: AMOXICILLIN\CLAVULANIC ACID
     Indication: INFECTION
     Route: 065
     Dates: start: 20130601, end: 20130610
  8. CLARITHROMYCIN. [Concomitant]
     Active Substance: CLARITHROMYCIN
     Route: 065
     Dates: start: 20130627, end: 20130702
  9. LORAZEPAM. [Concomitant]
     Active Substance: LORAZEPAM
     Indication: INSOMNIA
     Route: 065
     Dates: start: 20130629, end: 20130701

REACTIONS (4)
  - Pneumonia aspiration [Fatal]
  - Infection [Recovered/Resolved]
  - Pulmonary oedema [Not Recovered/Not Resolved]
  - Small intestinal haemorrhage [Recovered/Resolved]

NARRATIVE: CASE EVENT DATE: 20130529
